FAERS Safety Report 14492374 (Version 1)
Quarter: 2018Q1

REPORT INFORMATION
  Report Type: Spontaneous
  Country: CA (occurrence: CA)
  Receive Date: 20180205
  Receipt Date: 20180205
  Transmission Date: 20180509
  Serious: Yes (Hospitalization, Disabling, Other)
  Sender: FDA-Public Use
  Company Number: None

PATIENT
  Age: 21 Year
  Sex: Female
  Weight: 53.1 kg

DRUGS (3)
  1. CORTISONE [Suspect]
     Active Substance: CORTISONE\HYDROCORTISONE
  2. MOMETASONE [Suspect]
     Active Substance: MOMETASONE
     Indication: ECZEMA
     Dosage: ?          OTHER STRENGTH:MILD-STRONG;QUANTITY:1 1;?
     Route: 062
     Dates: start: 20080101, end: 20170926
  3. MOMETASONE [Suspect]
     Active Substance: MOMETASONE
     Indication: DERMATITIS ATOPIC
     Dosage: ?          OTHER STRENGTH:MILD-STRONG;QUANTITY:1 1;?
     Route: 062
     Dates: start: 20080101, end: 20170926

REACTIONS (2)
  - Drug withdrawal syndrome [None]
  - Red man syndrome [None]

NARRATIVE: CASE EVENT DATE: 20170922
